FAERS Safety Report 5320634-X (Version None)
Quarter: 2007Q2

REPORT INFORMATION
  Report Type: 
  Country: None (occurrence: None)
  Receive Date: 20070509
  Receipt Date: 20070427
  Transmission Date: 20071010
  Serious: Yes (Hospitalization, Other)
  Sender: FDA-Public Use
  Company Number: FR-PFIZER INC-2007008623

PATIENT
  Sex: Male
  Weight: 22 kg

DRUGS (9)
  1. ZYVOX [Suspect]
     Indication: LUNG INFECTION
     Dosage: DAILY DOSE:900MG
     Route: 042
     Dates: start: 20070106, end: 20070109
  2. TIENAM [Concomitant]
     Dosage: DAILY DOSE:1.5GRAM
     Route: 042
     Dates: start: 20070101, end: 20070130
  3. CIPROFLOXACIN HCL [Concomitant]
     Dosage: DAILY DOSE:800MG
     Route: 042
     Dates: start: 20061231, end: 20070109
  4. BACTRIM [Concomitant]
     Route: 042
  5. AMBISOME [Concomitant]
     Dosage: DAILY DOSE:150MG
     Route: 042
     Dates: start: 20070104, end: 20070129
  6. CANCIDAS [Concomitant]
     Dosage: DAILY DOSE:50MG
     Route: 042
     Dates: start: 20070106, end: 20070130
  7. NEUPOGEN [Concomitant]
     Dosage: DAILY DOSE:150MCG
     Route: 042
     Dates: start: 20070101, end: 20070109
  8. AMINO ACIDS [Concomitant]
     Dosage: TEXT:1.5 LITERS
     Route: 042
     Dates: start: 20070101, end: 20070130
  9. ZOFRAN [Concomitant]
     Dosage: DAILY DOSE:8MG
     Route: 042
     Dates: start: 20061228, end: 20070130

REACTIONS (2)
  - HYPOGLYCAEMIA [None]
  - HYPOTENSION [None]
